FAERS Safety Report 8872764 (Version 1)
Quarter: 2012Q4

REPORT INFORMATION
  Report Type: Spontaneous
  Country: US (occurrence: None)
  Receive Date: 20121026
  Receipt Date: 20121026
  Transmission Date: 20130627
  Serious: No
  Sender: FDA-Public Use
  Company Number: None

PATIENT
  Age: 57 Year
  Sex: Male
  Weight: 57.7 kg

DRUGS (1)
  1. DICLOXACILLIN [Suspect]
     Dosage: MG
     Route: 048
     Dates: start: 20120716, end: 20120824

REACTIONS (7)
  - Nausea [None]
  - Vomiting [None]
  - Liver function test abnormal [None]
  - Hyperbilirubinaemia [None]
  - Jaundice [None]
  - Hyponatraemia [None]
  - Ocular icterus [None]
